FAERS Safety Report 7365776-2 (Version None)
Quarter: 2011Q1

REPORT INFORMATION
  Report Type: 
  Country: None (occurrence: None)
  Receive Date: 20110322
  Receipt Date: 20110307
  Transmission Date: 20110831
  Serious: Yes (Other)
  Sender: FDA-Public Use
  Company Number: FR-JNJFOC-20110307217

PATIENT
  Age: 56 Year
  Sex: Male

DRUGS (2)
  1. TOPALGIC [Suspect]
     Indication: PRODUCT USED FOR UNKNOWN INDICATION
     Route: 065
  2. TOPALGIC [Suspect]
     Route: 065

REACTIONS (3)
  - WITHDRAWAL SYNDROME [None]
  - PAIN [None]
  - DRUG DEPENDENCE [None]
